FAERS Safety Report 13857310 (Version 1)
Quarter: 2017Q3

REPORT INFORMATION
  Report Type: Spontaneous
  Country: ZA (occurrence: ZA)
  Receive Date: 20170810
  Receipt Date: 20170810
  Transmission Date: 20171127
  Serious: Yes (Hospitalization)
  Sender: FDA-Public Use
  Company Number: ZA-TEVA-793639ISR

PATIENT
  Age: 36 Year
  Sex: Female
  Weight: 57.2 kg

DRUGS (8)
  1. DELAMANID [Suspect]
     Active Substance: DELAMANID
     Indication: TUBERCULOSIS
     Route: 065
  2. 3TC [Concomitant]
     Active Substance: LAMIVUDINE
  3. ALUVIA [Concomitant]
     Active Substance: LOPINAVIR\RITONAVIR
  4. BEDAQUILINE [Suspect]
     Active Substance: BEDAQUILINE
     Indication: TUBERCULOSIS
     Route: 065
  5. LEVOFLOXACIN. [Suspect]
     Active Substance: LEVOFLOXACIN
     Indication: TUBERCULOSIS
     Dosage: 1 GRAM DAILY;
     Route: 065
  6. ABC [Concomitant]
     Active Substance: UNSPECIFIED INGREDIENT
  7. ISONIAZID. [Suspect]
     Active Substance: ISONIAZID
     Indication: TUBERCULOSIS
     Dosage: 300 MILLIGRAM DAILY;
     Route: 065
  8. LINEZOLID. [Suspect]
     Active Substance: LINEZOLID
     Indication: TUBERCULOSIS
     Dosage: 600 MILLIGRAM DAILY;
     Route: 065

REACTIONS (2)
  - Headache [Recovering/Resolving]
  - Photophobia [Recovering/Resolving]

NARRATIVE: CASE EVENT DATE: 20170614
